FAERS Safety Report 15629271 (Version 1)
Quarter: 2018Q4

REPORT INFORMATION
  Report Type: Spontaneous
  Country: US (occurrence: US)
  Receive Date: 20181116
  Receipt Date: 20181116
  Transmission Date: 20190205
  Serious: No
  Sender: FDA-Public Use
  Company Number: US-VIFOR (INTERNATIONAL) INC.-VIT-2018-10995

PATIENT
  Age: 44 Year
  Sex: Male

DRUGS (11)
  1. VELTASSA [Suspect]
     Active Substance: PATIROMER
     Indication: HYPERKALAEMIA
     Dosage: 1 PACKET
     Route: 048
     Dates: start: 201606, end: 20170227
  2. ALLOPURINOL. [Concomitant]
     Active Substance: ALLOPURINOL
  3. TRAMADOL. [Concomitant]
     Active Substance: TRAMADOL
  4. ZETIA [Concomitant]
     Active Substance: EZETIMIBE
  5. HYDRALAZINE [Concomitant]
     Active Substance: HYDRALAZINE HYDROCHLORIDE
  6. CLONIDINE. [Concomitant]
     Active Substance: CLONIDINE
  7. NORVASC [Concomitant]
     Active Substance: AMLODIPINE BESYLATE
  8. COLCRYS [Concomitant]
     Active Substance: COLCHICINE
  9. VITAMIN D3 [Concomitant]
     Active Substance: CHOLECALCIFEROL
  10. IRON [Concomitant]
     Active Substance: IRON
  11. MULTIVITAMIN [Concomitant]
     Active Substance: VITAMINS

REACTIONS (1)
  - Blood potassium decreased [Unknown]

NARRATIVE: CASE EVENT DATE: 20170227
